FAERS Safety Report 10268695 (Version 1)
Quarter: 2014Q2

REPORT INFORMATION
  Report Type: Spontaneous
  Country: US (occurrence: US)
  Receive Date: 20140630
  Receipt Date: 20140630
  Transmission Date: 20141212
  Serious: No
  Sender: FDA-Public Use
  Company Number: US-PFIZER INC-2014175144

PATIENT
  Age: 57 Year
  Sex: Male

DRUGS (10)
  1. EFFEXOR [Suspect]
     Dosage: UNK
  2. LITHIUM CARBONATE [Suspect]
     Dosage: UNK
  3. ABILIFY [Suspect]
     Dosage: UNK
  4. DEMEROL [Suspect]
     Dosage: UNK
  5. ZOMIG [Suspect]
     Dosage: UNK
  6. FIORINAL [Suspect]
     Dosage: UNK
  7. KLONOPIN [Suspect]
     Dosage: UNK
  8. ALEVE [Suspect]
     Dosage: UNK
  9. DIOVAN [Suspect]
     Dosage: UNK
  10. IMITREX [Suspect]
     Dosage: UNK

REACTIONS (1)
  - Drug hypersensitivity [Unknown]
